FAERS Safety Report 8500041-9 (Version None)
Quarter: 2012Q3

REPORT INFORMATION
  Report Type: 
  Country: None (occurrence: None)
  Receive Date: 20120710
  Receipt Date: 20120702
  Transmission Date: 20120928
  Serious: No
  Sender: FDA-Public Use
  Company Number: US-BAYER-2012-065685

PATIENT
  Sex: Female

DRUGS (2)
  1. MIRENA [Suspect]
     Dosage: 20 MCG/24HR, CONT
  2. PARAGARD T 380A [Suspect]

REACTIONS (2)
  - VAGINITIS BACTERIAL [None]
  - GENITAL INFECTION FEMALE [None]
